FAERS Safety Report 8848594 (Version 1)
Quarter: 2012Q4

REPORT INFORMATION
  Report Type: 
  Country: US (occurrence: US)
  Receive Date: 20121018
  Receipt Date: 20121018
  Transmission Date: 20130627
  Serious: Yes (Other)
  Sender: FDA-Public Use
  Company Number: US-ROCHE-1134410

PATIENT
  Sex: Female
  Weight: 53.57 kg

DRUGS (1)
  1. RITUXAN [Suspect]
     Indication: CHRONIC LYMPHOCYTIC LEUKAEMIA
     Route: 042
     Dates: start: 19990202

REACTIONS (13)
  - No therapeutic response [Unknown]
  - Fatigue [Unknown]
  - Dyspnoea [Unknown]
  - Decreased appetite [Unknown]
  - Weight decreased [Unknown]
  - Pyrexia [Unknown]
  - Chronic lymphocytic leukaemia [Unknown]
  - Parkinson^s disease [Unknown]
  - Hypogammaglobulinaemia [Unknown]
  - Gait disturbance [Unknown]
  - Tremor [Unknown]
  - Malaise [Unknown]
  - Haemorrhage [Unknown]
